FAERS Safety Report 26055188 (Version 2)
Quarter: 2025Q4

REPORT INFORMATION
  Report Type: Spontaneous
  Country: IN (occurrence: IN)
  Receive Date: 20251117
  Receipt Date: 20251120
  Transmission Date: 20260117
  Serious: Yes (Hospitalization, Other)
  Sender: ELI LILLY AND COMPANY
  Company Number: IN-ELI_LILLY_AND_COMPANY-IN202511006906

PATIENT
  Age: 42 Year
  Sex: Female
  Weight: 90 kg

DRUGS (2)
  1. MOUNJARO [Suspect]
     Active Substance: TIRZEPATIDE
     Indication: Product used for unknown indication
     Dosage: 2.5 MG, UNKNOWN
     Route: 042
     Dates: start: 202504
  2. MOUNJARO [Suspect]
     Active Substance: TIRZEPATIDE
     Indication: Product used for unknown indication
     Dosage: 2.5 MG, UNKNOWN
     Route: 042
     Dates: start: 202504

REACTIONS (6)
  - Jaundice [Unknown]
  - Guillain-Barre syndrome [Unknown]
  - Blood bilirubin increased [Unknown]
  - Autoimmune hepatitis [Unknown]
  - Renal failure [Not Recovered/Not Resolved]
  - Incorrect route of product administration [Unknown]

NARRATIVE: CASE EVENT DATE: 20250611
